FAERS Safety Report 6371246-0 (Version None)
Quarter: 2009Q3

REPORT INFORMATION
  Report Type: 
  Country: None (occurrence: None)
  Receive Date: 20090923
  Receipt Date: 20071219
  Transmission Date: 20100115
  Serious: Yes (Hospitalization, Other)
  Sender: FDA-Public Use
  Company Number: US-ASTRAZENECA-2006UW27675

PATIENT
  Age: 17951 Day
  Sex: Female
  Weight: 98.4 kg

DRUGS (26)
  1. SEROQUEL [Suspect]
     Indication: DEPRESSION
     Dosage: 25-600 MG
     Route: 048
     Dates: start: 19960101
  2. SEROQUEL [Suspect]
     Indication: POST-TRAUMATIC STRESS DISORDER
     Dosage: 25-600 MG
     Route: 048
     Dates: start: 19960101
  3. SEROQUEL [Suspect]
     Indication: DISSOCIATIVE IDENTITY DISORDER
     Dosage: 25-600 MG
     Route: 048
     Dates: start: 19960101
  4. SEROQUEL [Suspect]
     Dosage: DOSE-150 MG-550 MG
     Route: 048
     Dates: start: 19990326
  5. SEROQUEL [Suspect]
     Dosage: DOSE-150 MG-550 MG
     Route: 048
     Dates: start: 19990326
  6. SEROQUEL [Suspect]
     Dosage: DOSE-150 MG-550 MG
     Route: 048
     Dates: start: 19990326
  7. RISPERDAL [Concomitant]
     Dates: start: 19950101
  8. THORAZINE [Concomitant]
     Dates: start: 19950101, end: 19950101
  9. WELLBUTRIN [Concomitant]
  10. BUSPIRONE HCL [Concomitant]
  11. LORAZEPAM [Concomitant]
  12. PEPCID [Concomitant]
     Indication: GASTROINTESTINAL DISORDER
  13. EXELON [Concomitant]
  14. BUSPAR [Concomitant]
     Dosage: STRENGTH-10 MG, 15MG, 50 MG. DOSE-10 MG-100 MG DAILY
  15. ATIVAN [Concomitant]
     Dosage: STRENGTH-1MG, 4 MG. DOSE-4-6 MG DAILY
  16. COZAAR [Concomitant]
     Dosage: STRENGTH-15 MG, 50 MG. DOSE-15 MG-50 MG DAILY
  17. VIOXX [Concomitant]
  18. SYNTHROID [Concomitant]
     Indication: HYPOTHYROIDISM
     Dosage: STRENGTH-25MCG, 0.025 MG, 0.05 MG  DOSE-25MCG-0.05 MG DAILY
  19. ZIAC [Concomitant]
     Dosage: STRENGTH-5MG, 10 MG. DOSE-5-10 MG DAILY
  20. ATENOLOL [Concomitant]
  21. DEPAKOTE [Concomitant]
  22. ZESTRIL [Concomitant]
     Indication: HYPERTENSION
  23. LUVOX [Concomitant]
  24. LITHIUM [Concomitant]
     Dosage: 150-450 MG DAILY
  25. KLONOPIN [Concomitant]
     Dosage: STRENGTH-0.25MG, 0.75MG, 2MG. DOSE-1.5-2 MG DAILY
     Route: 048
  26. DILTIAZEM [Concomitant]

REACTIONS (9)
  - BLOOD CHOLESTEROL INCREASED [None]
  - DIABETES MELLITUS [None]
  - GLUCOSE TOLERANCE IMPAIRED [None]
  - GLYCOSURIA [None]
  - HYPERCHOLESTEROLAEMIA [None]
  - HYPERGLYCAEMIA [None]
  - PANCREATITIS [None]
  - SUICIDAL IDEATION [None]
  - SUICIDE ATTEMPT [None]
